FAERS Safety Report 7029513-3 (Version None)
Quarter: 2010Q4

REPORT INFORMATION
  Report Type: 
  Country: None (occurrence: None)
  Receive Date: 20101005
  Receipt Date: 20100928
  Transmission Date: 20110411
  Serious: Yes (Death)
  Sender: FDA-Public Use
  Company Number: DE-ELI_LILLY_AND_COMPANY-DE201009008045

PATIENT
  Age: 70 Year
  Sex: Male

DRUGS (4)
  1. ALIMTA [Suspect]
     Indication: NON-SMALL CELL LUNG CANCER
     Dosage: 500 MG/M2, ONCE
     Dates: start: 20100825
  2. FOLSAN [Concomitant]
     Dates: start: 20100801
  3. FORTECORTIN [Concomitant]
     Dosage: 4 MG, 2/D
     Dates: start: 20100824
  4. VIT B12 [Concomitant]
     Route: 058
     Dates: start: 20100825

REACTIONS (4)
  - DYSPNOEA [None]
  - LEUKOPENIA [None]
  - PAIN [None]
  - THROMBOCYTOPENIA [None]
